FAERS Safety Report 8423932 (Version 3)
Quarter: 2013Q1

REPORT INFORMATION
  Report Type: Spontaneous
  Country: US (occurrence: US)
  Receive Date: 20120224
  Receipt Date: 20130124
  Transmission Date: 20140127
  Serious: Yes (Hospitalization)
  Sender: FDA-Public Use
  Company Number: US-BAYER-2012-016287

PATIENT
  Age: 48 Year
  Sex: Female
  Weight: 150 kg

DRUGS (4)
  1. YAZ [Suspect]
     Indication: MENSTRUAL CYCLE MANAGEMENT
     Dosage: UNK
     Route: 048
     Dates: start: 2003, end: 20120116
  2. YAZ [Suspect]
     Indication: MENORRHAGIA
  3. FLUOXETINE [Concomitant]
     Dosage: 2 DF, QD
     Route: 048
  4. PAXIL [Concomitant]
     Indication: DEPRESSION

REACTIONS (5)
  - Pulmonary embolism [None]
  - Chest pain [None]
  - Dyspnoea [None]
  - Flatulence [None]
  - Off label use [None]
